FAERS Safety Report 4875407-9 (Version None)
Quarter: 2006Q1

REPORT INFORMATION
  Report Type: 
  Country: None (occurrence: None)
  Receive Date: 20060109
  Receipt Date: 20051216
  Transmission Date: 20060701
  Serious: Yes (Congenital Anomaly, Other)
  Sender: FDA-Public Use
  Company Number: JP-BRISTOL-MYERS SQUIBB COMPANY-13222435

PATIENT
  Sex: Male
  Weight: 3 kg

DRUGS (4)
  1. ZERIT [Suspect]
     Route: 064
     Dates: start: 20030428, end: 20030527
  2. EPIVIR [Suspect]
     Dosage: WITHHELD FROM 06-OCT-2003 UNTIL 09-OCT-2003
     Route: 064
     Dates: start: 20030428, end: 20031111
  3. VIRACEPT [Suspect]
     Dosage: WITHHELD 05-MAY-2003 UNTIL 09-MAY-2003, STOPPED 06-OCT-2003 RESTARTED 09-OCT-2003
     Route: 064
     Dates: start: 20030428, end: 20031111
  4. RETROVIR [Suspect]
     Dosage: WITHHELD 06-OCT-2003 UNTIL 09-OCT-2003
     Route: 064
     Dates: start: 20030522, end: 20031111

REACTIONS (3)
  - CONGENITAL HYDRONEPHROSIS [None]
  - DRUG EXPOSURE DURING PREGNANCY [None]
  - PREGNANCY [None]
